FAERS Safety Report 10541326 (Version 2)
Quarter: 2014Q4

REPORT INFORMATION
  Report Type: Report from Study
  Country: MX (occurrence: MX)
  Receive Date: 20141024
  Receipt Date: 20141027
  Transmission Date: 20150529
  Serious: Yes (Death)
  Sender: FDA-Public Use
  Company Number: PHHY2014MX139223

PATIENT
  Age: 76 Year
  Sex: Female

DRUGS (4)
  1. GALVUS MET [Concomitant]
     Active Substance: METFORMIN HYDROCHLORIDE\VILDAGLIPTIN
     Indication: DIABETES MELLITUS
     Dosage: 3 DF (3 TABLETS), QD
     Route: 048
     Dates: start: 201310
  2. EXELON [Suspect]
     Active Substance: RIVASTIGMINE TARTRATE
     Indication: OFF LABEL USE
  3. GALVUS MET [Concomitant]
     Active Substance: METFORMIN HYDROCHLORIDE\VILDAGLIPTIN
     Dosage: 2 DF (2 TABLETS), QD
     Route: 048
     Dates: start: 201401
  4. EXELON [Suspect]
     Active Substance: RIVASTIGMINE TARTRATE
     Indication: THROMBOSIS PROPHYLAXIS
     Dosage: 9.5 MG, QD
     Route: 065
     Dates: start: 201403

REACTIONS (3)
  - Ischaemia [Fatal]
  - Diabetic complication [Fatal]
  - Embolism [Fatal]

NARRATIVE: CASE EVENT DATE: 20140829
